FAERS Safety Report 5412141-0 (Version None)
Quarter: 2007Q3

REPORT INFORMATION
  Report Type: 
  Country: None (occurrence: None)
  Receive Date: 20070808
  Receipt Date: 20070725
  Transmission Date: 20080115
  Serious: Yes (Other)
  Sender: FDA-Public Use
  Company Number: 2007S1006937

PATIENT
  Age: 61 Year
  Sex: Male

DRUGS (7)
  1. PHENYTOIN SODIUM [Suspect]
     Indication: EPILEPSY
     Dosage: 500 MG; DAILY; ORAL
     Route: 048
  2. ATORVASTATIN CALCIUM [Suspect]
     Indication: DYSLIPIDAEMIA
     Dosage: 40 G;DAILY;ORAL; 80 MG;DAILY; ORAL
     Route: 048
  3. EZETIMIBE [Suspect]
     Indication: DYSLIPIDAEMIA
     Dosage: 10 MG;DAILY;ORAL
     Route: 048
  4. NIACIN [Suspect]
     Dosage: ORAL; 2 G; DAILY; ORAL
     Route: 048
  5. ASPIRIN [Concomitant]
  6. PHENOBARBITAL TAB [Concomitant]
  7. FOSINOPRIL SODIUM [Concomitant]

REACTIONS (5)
  - ACUTE CORONARY SYNDROME [None]
  - ANGIOPLASTY [None]
  - DRUG EFFECT DECREASED [None]
  - DRUG INTERACTION INHIBITION [None]
  - DYSLIPIDAEMIA [None]
